FAERS Safety Report 5296795-8 (Version None)
Quarter: 2007Q2

REPORT INFORMATION
  Report Type: 
  Country: None (occurrence: None)
  Receive Date: 20070413
  Receipt Date: 20070403
  Transmission Date: 20071010
  Serious: Yes (Other)
  Sender: FDA-Public Use
  Company Number: US-PFIZER INC-2007027338

PATIENT
  Sex: Female
  Weight: 96.6 kg

DRUGS (12)
  1. LYRICA [Suspect]
     Indication: FIBROMYALGIA
  2. SYNVISC [Interacting]
     Indication: ARTHRITIS
     Dates: start: 20060901, end: 20061001
  3. TRAZODONE HCL [Concomitant]
  4. CYMBALTA [Concomitant]
  5. SEROQUEL [Concomitant]
  6. ZYPREXA [Concomitant]
  7. LORAZEPAM [Concomitant]
  8. LEVOXYL [Concomitant]
  9. VALSARTAN [Concomitant]
  10. LIDODERM PATCH [Concomitant]
  11. DETROL LA [Concomitant]
  12. CELEBREX [Concomitant]

REACTIONS (6)
  - DRUG INTERACTION [None]
  - JOINT SWELLING [None]
  - MUSCULAR WEAKNESS [None]
  - MYALGIA [None]
  - SKIN DISCOLOURATION [None]
  - WEIGHT DECREASED [None]
